FAERS Safety Report 6328765-2 (Version None)
Quarter: 2009Q3

REPORT INFORMATION
  Report Type: 
  Country: None (occurrence: None)
  Receive Date: 20090826
  Receipt Date: 20090818
  Transmission Date: 20100115
  Serious: No
  Sender: FDA-Public Use
  Company Number: AR-ASTRAZENECA-2009UW21861

PATIENT
  Age: 56 Year
  Sex: Female

DRUGS (4)
  1. ARIMIDEX [Suspect]
     Indication: BREAST CANCER
     Route: 048
     Dates: start: 20000101
  2. PANTOPRAZOLE SODIUM [Concomitant]
     Route: 048
  3. IBUPROFEN [Concomitant]
     Route: 048
  4. PARACETAMOL [Concomitant]
     Route: 048

REACTIONS (1)
  - MACULOPATHY [None]
